FAERS Safety Report 4747714-1 (Version None)
Quarter: 2005Q3

REPORT INFORMATION
  Report Type: 
  Country: None (occurrence: None)
  Receive Date: 20050817
  Receipt Date: 20050817
  Transmission Date: 20060218
  Serious: No
  Sender: FDA-Public Use
  Company Number: None

PATIENT
  Sex: Male
  Weight: 92 kg

DRUGS (2)
  1. TRAZODONE 100 MG [Suspect]
     Indication: DEPRESSION
     Dosage: 100 MG QHS ORAL
     Route: 048
     Dates: start: 20030929, end: 20050616
  2. TRAZODONE 100 MG [Suspect]
     Indication: SOMNOLENCE
     Dosage: 100 MG QHS ORAL
     Route: 048
     Dates: start: 20030929, end: 20050616

REACTIONS (1)
  - PRIAPISM [None]
